FAERS Safety Report 8910067 (Version 3)
Quarter: 2013Q2

REPORT INFORMATION
  Report Type: Report from Study
  Country: IE (occurrence: IE)
  Receive Date: 20121115
  Receipt Date: 20130506
  Transmission Date: 20140414
  Serious: Yes (Hospitalization)
  Sender: FDA-Public Use
  Company Number: IE-ABBOTT-12P-229-1007215-00

PATIENT
  Age: 29 Year
  Sex: Female

DRUGS (12)
  1. HUMIRA [Suspect]
     Indication: CROHN^S DISEASE
     Route: 058
     Dates: start: 20120522, end: 20120522
  2. HUMIRA [Suspect]
     Route: 058
  3. HUMIRA [Suspect]
     Route: 058
     Dates: end: 201211
  4. DALMANE [Concomitant]
     Indication: PRODUCT USED FOR UNKNOWN INDICATION
  5. LOSEC [Concomitant]
     Indication: PRODUCT USED FOR UNKNOWN INDICATION
  6. LYRICA [Concomitant]
     Indication: PRODUCT USED FOR UNKNOWN INDICATION
  7. OXYNORM [Concomitant]
     Indication: PRODUCT USED FOR UNKNOWN INDICATION
  8. LUSTRAL [Concomitant]
     Indication: PRODUCT USED FOR UNKNOWN INDICATION
  9. GALFER [Concomitant]
     Indication: PRODUCT USED FOR UNKNOWN INDICATION
  10. QUETIAPINE [Concomitant]
     Indication: PRODUCT USED FOR UNKNOWN INDICATION
  11. OXYNORM LUSTRAL [Concomitant]
     Indication: PRODUCT USED FOR UNKNOWN INDICATION
  12. ANOTHER AGENT [Concomitant]
     Indication: CROHN^S DISEASE

REACTIONS (2)
  - Infection [Recovered/Resolved]
  - Drug ineffective [Unknown]
